FAERS Safety Report 14082367 (Version 1)
Quarter: 2017Q4

REPORT INFORMATION
  Report Type: Spontaneous
  Country: JP (occurrence: JP)
  Receive Date: 20171012
  Receipt Date: 20171012
  Transmission Date: 20180321
  Serious: Yes (Hospitalization)
  Sender: FDA-Public Use
  Company Number: JP-MYLANLABS-2017M1063634

PATIENT
  Age: 41 Year
  Sex: Male

DRUGS (2)
  1. ABACAVIR SULFATE/LAMIVUDINE [Suspect]
     Active Substance: ABACAVIR SULFATE\LAMIVUDINE
     Indication: HIV INFECTION
     Dosage: FOR 10 YEARS
     Route: 065
  2. ALLTERA [Suspect]
     Active Substance: LOPINAVIR\RITONAVIR
     Indication: HIV INFECTION
     Dosage: FOR 10 YEARS
     Route: 065

REACTIONS (3)
  - Gingivitis ulcerative [Recovered/Resolved]
  - Oral candidiasis [Recovered/Resolved]
  - Breath odour [None]
